FAERS Safety Report 8173434 (Version 2)
Quarter: 2020Q3

REPORT INFORMATION
  Report Type: Spontaneous
  Country: US (occurrence: US)
  Receive Date: 20111007
  Receipt Date: 20111010
  Transmission Date: 20201105
  Serious: Yes (Other)
  Sender: FDA-Public Use
  Company Number: US-ASTRAZENECA-2011SE58909

PATIENT
  Sex: Male

DRUGS (12)
  1. FINASTERIDE. [Suspect]
     Active Substance: FINASTERIDE
     Route: 065
  2. SALSALATE. [Suspect]
     Active Substance: SALSALATE
     Route: 065
  3. SIMVASTATIN. [Suspect]
     Active Substance: SIMVASTATIN
     Route: 065
  4. LISINOPRIL. [Suspect]
     Active Substance: LISINOPRIL
     Route: 048
  5. AMLODIPINE BESYLATE. [Suspect]
     Active Substance: AMLODIPINE BESYLATE
     Route: 065
  6. FLAX SEEDS [Suspect]
     Active Substance: FLAX SEEDS
     Route: 065
  7. TERAZOSIN HYDROCHLORIDE. [Suspect]
     Active Substance: TERAZOSIN HYDROCHLORIDE
     Route: 065
  8. FISH OIL [Suspect]
     Active Substance: FISH OIL
     Route: 065
  9. SINGULAIR [Suspect]
     Active Substance: MONTELUKAST SODIUM
     Route: 065
  10. OMEPRAZOLE. [Suspect]
     Active Substance: OMEPRAZOLE
     Route: 048
  11. VITAMIN E [Suspect]
     Active Substance: .ALPHA.-TOCOPHEROL
     Route: 065
  12. VITAMIN D2 [Suspect]
     Active Substance: ERGOCALCIFEROL
     Route: 065

REACTIONS (2)
  - Dysuria [Unknown]
  - Cataract [Unknown]
